FAERS Safety Report 7799797-2 (Version None)
Quarter: 2011Q4

REPORT INFORMATION
  Report Type: 
  Country: None (occurrence: None)
  Receive Date: 20111006
  Receipt Date: 20110927
  Transmission Date: 20120403
  Serious: Yes (Other)
  Sender: FDA-Public Use
  Company Number: US-BAYER-2011-092151

PATIENT
  Age: 20 Year
  Sex: Female

DRUGS (1)
  1. MIRENA [Suspect]
     Indication: CONTRACEPTION
     Dosage: 20 MCG/24HR, CONT
     Route: 015
     Dates: start: 20110803, end: 20110927

REACTIONS (6)
  - PYREXIA [None]
  - CHILLS [None]
  - PELVIC INFLAMMATORY DISEASE [None]
  - VAGINAL HAEMORRHAGE [None]
  - VULVOVAGINAL PAIN [None]
  - VAGINAL DISCHARGE [None]
